FAERS Safety Report 6111792-8 (Version None)
Quarter: 2009Q1

REPORT INFORMATION
  Report Type: 
  Country: None (occurrence: None)
  Receive Date: 20090311
  Receipt Date: 20080725
  Transmission Date: 20090719
  Serious: No
  Sender: FDA-Public Use
  Company Number: US-TYCO HEALTHCARE/MALLINCKRODT-T200801223

PATIENT

DRUGS (13)
  1. ACETAMINOPHEN AND HYDROCODONE BITARTRATE [Suspect]
     Indication: PAIN
     Dosage: 7.5/500 MG, 1 TAB Q 4 HRS
     Route: 048
     Dates: start: 20080721, end: 20080721
  2. ACETAMINOPHEN AND HYDROCODONE BITARTRATE [Suspect]
  3. LORTAB [Concomitant]
     Indication: PAIN
     Dosage: 7.5/500 MG, UNK
     Dates: start: 20080702
  4. LOVASTATIN [Concomitant]
     Indication: BLOOD CHOLESTEROL INCREASED
     Dosage: 20 MG, QD
     Route: 048
  5. NEURONTIN [Concomitant]
     Indication: FAMILIAL TREMOR
     Dosage: 100 MG, TID
     Route: 048
  6. QUINAPRIL [Concomitant]
     Indication: HYPERTENSION
     Dosage: 30 MG, QD
     Route: 048
  7. FINASTERIDE [Concomitant]
     Dosage: 5 MG, QD
     Route: 048
  8. METFORMIN HCL [Concomitant]
     Indication: DIABETES MELLITUS
     Dosage: 1000 MG, BID
     Route: 048
  9. ASPIRIN [Concomitant]
     Dosage: 81 MG, QD
     Route: 048
  10. FLOMAX [Concomitant]
     Indication: BENIGN PROSTATIC HYPERPLASIA
     Dosage: UNK, QHS
     Route: 048
  11. LANTUS [Concomitant]
     Indication: DIABETES MELLITUS
     Dosage: 44 UNITS, UNK
     Route: 058
  12. KLONOPIN [Concomitant]
     Dosage: 3 MG, QD
     Route: 048
  13. LUVOX [Concomitant]
     Indication: OBSESSIVE-COMPULSIVE DISORDER
     Dosage: 300 MG, QD
     Route: 048

REACTIONS (3)
  - CHEST DISCOMFORT [None]
  - DRUG INEFFECTIVE [None]
  - HYPERVENTILATION [None]
